FAERS Safety Report 6006732-6 (Version None)
Quarter: 2008Q4

REPORT INFORMATION
  Report Type: 
  Country: None (occurrence: None)
  Receive Date: 20081215
  Receipt Date: 20081201
  Transmission Date: 20090506
  Serious: Yes (Other)
  Sender: FDA-Public Use
  Company Number: 2008AL012155

PATIENT
  Sex: 0

DRUGS (3)
  1. CITALOPRAM HYDROBROMIDE (CITALOPRAM HYDROBROMIDE) [Suspect]
     Dosage: 1200 MG
  2. ANTIDEPRESSANTS NON SPECIFIED [Concomitant]
  3. NOT SPECIFIED` [Concomitant]

REACTIONS (4)
  - DRUG TOXICITY [None]
  - GLASGOW COMA SCALE ABNORMAL [None]
  - OVERDOSE [None]
  - TACHYCARDIA [None]
